FAERS Safety Report 9845434 (Version 2)
Quarter: 2014Q1

REPORT INFORMATION
  Report Type: Spontaneous
  Country: IT (occurrence: IT)
  Receive Date: 20140127
  Receipt Date: 20140127
  Transmission Date: 20141002
  Serious: Yes (Hospitalization)
  Sender: FDA-Public Use
  Company Number: IT-PFIZER INC-2013088306

PATIENT
  Age: 64 Year
  Sex: Female

DRUGS (2)
  1. LORAZEPAM [Suspect]
     Dosage: 6 DF, DAILY
     Route: 048
     Dates: start: 20130124, end: 20130124
  2. ALPRAZOLAM [Suspect]
     Dosage: 4 DF, DAILY
     Route: 048
     Dates: start: 20130124, end: 20130124

REACTIONS (4)
  - Drug abuse [Recovering/Resolving]
  - Intentional self-injury [Recovering/Resolving]
  - Disorientation [Recovering/Resolving]
  - Sopor [Recovering/Resolving]
